FAERS Safety Report 4724239-0 (Version None)
Quarter: 2005Q3

REPORT INFORMATION
  Report Type: 
  Country: None (occurrence: None)
  Receive Date: 20050726
  Receipt Date: 20050714
  Transmission Date: 20060218
  Serious: Yes (Hospitalization)
  Sender: FDA-Public Use
  Company Number: US-JNJFOC-20050607486

PATIENT
  Sex: Female
  Weight: 88.45 kg

DRUGS (20)
  1. REMICADE [Suspect]
     Dosage: 3RD INFUSION
     Route: 042
  2. REMICADE [Suspect]
     Indication: CROHN'S DISEASE
     Route: 042
  3. TOPAMAX [Concomitant]
  4. NEURONTIN [Concomitant]
  5. NEURONTIN [Concomitant]
     Dosage: 1200 MG - 600MG
  6. BENTYL [Concomitant]
     Dosage: BEFORE MEALS AND AT BEDTIME.
  7. TRAZADONE [Concomitant]
     Indication: INSOMNIA
  8. RABAKIN [Concomitant]
  9. ACCOLATE [Concomitant]
  10. CIPRO [Concomitant]
     Dosage: PRN
  11. ASTHMA INHALER [Concomitant]
     Indication: ASTHMA
  12. PROTONIX [Concomitant]
  13. PREDNISONE [Concomitant]
  14. MAALOX [Concomitant]
  15. MAALOX [Concomitant]
     Dosage: PRN
  16. MAXALT [Concomitant]
     Indication: MIGRAINE
  17. ZOFRAN [Concomitant]
     Dosage: EVERY 4-6 HOURS
  18. ULTRAM [Concomitant]
  19. TYLENOL [Concomitant]
     Indication: PREMEDICATION
  20. SOLU-MEDROL [Concomitant]
     Indication: PREMEDICATION

REACTIONS (11)
  - BACK PAIN [None]
  - BLOOD POTASSIUM DECREASED [None]
  - BLOOD PRESSURE DECREASED [None]
  - DYSKINESIA [None]
  - ERYTHEMA [None]
  - INFUSION RELATED REACTION [None]
  - OEDEMA PERIPHERAL [None]
  - PAIN IN EXTREMITY [None]
  - PARALYSIS [None]
  - PHARYNGOLARYNGEAL PAIN [None]
  - SINUSITIS [None]
